FAERS Safety Report 5140895-X (Version None)
Quarter: 2006Q4

REPORT INFORMATION
  Report Type: 
  Country: None (occurrence: None)
  Receive Date: 20060905
  Receipt Date: 20060731
  Transmission Date: 20070319
  Serious: No
  Sender: FDA-Public Use
  Company Number: 36020

PATIENT
  Age: 50 Year
  Sex: Female

DRUGS (2)
  1. NEVANAC [Suspect]
     Indication: PROPHYLAXIS
  2. VIGAMOX [Suspect]
     Indication: PROPHYLAXIS

REACTIONS (1)
  - HYPERSENSITIVITY [None]
